FAERS Safety Report 25257054 (Version 1)
Quarter: 2025Q2

REPORT INFORMATION
  Report Type: Spontaneous
  Country: GB (occurrence: GB)
  Receive Date: 20250430
  Receipt Date: 20250430
  Transmission Date: 20250716
  Serious: Yes (Other)
  Sender: PFIZER
  Company Number: None

PATIENT
  Age: 6 Year
  Sex: Female

DRUGS (15)
  1. HYDROCORTISONE SODIUM SUCCINATE [Suspect]
     Active Substance: HYDROCORTISONE SODIUM SUCCINATE
     Indication: Bronchospasm
  2. HYDROCORTISONE SODIUM SUCCINATE [Suspect]
     Active Substance: HYDROCORTISONE SODIUM SUCCINATE
     Indication: Haemodynamic instability
  3. DOBUTAMINE [Suspect]
     Active Substance: DOBUTAMINE HYDROCHLORIDE
     Indication: Bronchospasm
  4. DOBUTAMINE [Suspect]
     Active Substance: DOBUTAMINE HYDROCHLORIDE
     Indication: Haemodynamic instability
  5. MAGNESIUM SULFATE [Suspect]
     Active Substance: MAGNESIUM SULFATE
     Indication: Bronchospasm
  6. MAGNESIUM SULFATE [Suspect]
     Active Substance: MAGNESIUM SULFATE
     Indication: Haemodynamic instability
  7. METARAMINOL [Suspect]
     Active Substance: METARAMINOL
     Indication: Bronchospasm
  8. METARAMINOL [Suspect]
     Active Substance: METARAMINOL
     Indication: Haemodynamic instability
  9. NOREPINEPHRINE HYDROCHLORIDE, (+/-)- [Suspect]
     Active Substance: NOREPINEPHRINE HYDROCHLORIDE, (+/-)-
     Indication: Bronchospasm
  10. NOREPINEPHRINE HYDROCHLORIDE, (+/-)- [Suspect]
     Active Substance: NOREPINEPHRINE HYDROCHLORIDE, (+/-)-
     Indication: Haemodynamic instability
  11. SEVOFLURANE [Suspect]
     Active Substance: SEVOFLURANE
     Indication: Bronchospasm
  12. SEVOFLURANE [Suspect]
     Active Substance: SEVOFLURANE
     Indication: Haemodynamic instability
  13. DEXTROSE [Suspect]
     Active Substance: DEXTROSE MONOHYDRATE
  14. DEXTROSE [Suspect]
     Active Substance: DEXTROSE MONOHYDRATE
  15. SODIUM CHLORIDE [Concomitant]
     Active Substance: SODIUM CHLORIDE

REACTIONS (1)
  - Hyperglycaemia [Recovered/Resolved]
